FAERS Safety Report 7639117-7 (Version None)
Quarter: 2011Q3

REPORT INFORMATION
  Report Type: 
  Country: None (occurrence: None)
  Receive Date: 20110726
  Receipt Date: 20110726
  Transmission Date: 20111222
  Serious: No
  Sender: FDA-Public Use
  Company Number: None

PATIENT
  Sex: Female
  Weight: 97.5234 kg

DRUGS (1)
  1. TRILEPTAL [Suspect]
     Dosage: 600MG PO BID
     Route: 048

REACTIONS (4)
  - AGGRESSION [None]
  - DRUG INTOLERANCE [None]
  - PRODUCT SUBSTITUTION ISSUE [None]
  - IRRITABILITY [None]
